FAERS Safety Report 21209983 (Version 2)
Quarter: 2022Q3

REPORT INFORMATION
  Report Type: Other
  Country: FR (occurrence: None)
  Receive Date: 20220813
  Receipt Date: 20220817
  Transmission Date: 20221027
  Serious: Yes (Death)
  Sender: FDA-Public Use
  Company Number: DE-AMGEN-DEUSP2022039373

PATIENT
  Age: 52 Year
  Sex: Male

DRUGS (7)
  1. CAPECITABINE [Suspect]
     Active Substance: CAPECITABINE
     Indication: Carcinoid tumour pulmonary
     Route: 065
     Dates: start: 201206, end: 201501
  2. CAPECITABINE [Suspect]
     Active Substance: CAPECITABINE
     Route: 065
     Dates: start: 201612, end: 201702
  3. CAPECITABINE [Suspect]
     Active Substance: CAPECITABINE
     Route: 065
     Dates: start: 201805
  4. BEVACIZUMAB [Suspect]
     Active Substance: BEVACIZUMAB
     Indication: Carcinoid tumour pulmonary
     Route: 065
     Dates: start: 201805
  5. TEMOZOLOMIDE [Suspect]
     Active Substance: TEMOZOLOMIDE
     Indication: Carcinoid tumour pulmonary
     Route: 065
     Dates: start: 201206, end: 201501
  6. TEMOZOLOMIDE [Suspect]
     Active Substance: TEMOZOLOMIDE
     Route: 065
     Dates: start: 201612, end: 201702
  7. EVEROLIMUS [Concomitant]
     Active Substance: EVEROLIMUS
     Route: 065
     Dates: end: 201801

REACTIONS (2)
  - Carcinoid tumour pulmonary [Fatal]
  - Drug resistance [Fatal]
